FAERS Safety Report 6962134-7 (Version None)
Quarter: 2010Q3

REPORT INFORMATION
  Report Type: 
  Country: None (occurrence: None)
  Receive Date: 20100901
  Receipt Date: 20100901
  Transmission Date: 20110219
  Serious: Yes (Life-Threatening, Hospitalization)
  Sender: FDA-Public Use
  Company Number: None

PATIENT
  Age: 55 Year
  Sex: Female
  Weight: 81.6475 kg

DRUGS (1)
  1. ALLI DO NOT HAVE THE INFORMATION GLAXOSMITHKLINE [Suspect]
     Indication: WEIGHT CONTROL
     Dosage: 3PER DAY 1 @ EVERY MEAL PO
     Route: 048
     Dates: start: 20080201, end: 20080831

REACTIONS (10)
  - ABDOMINAL PAIN [None]
  - CHOLECYSTECTOMY [None]
  - COLECTOMY TOTAL [None]
  - ENTEROCUTANEOUS FISTULA [None]
  - FISTULA [None]
  - GASTROSTOMY [None]
  - JEJUNOSTOMY [None]
  - PANCREATIC DISORDER [None]
  - TRACHEOSTOMY [None]
  - VENA CAVA FILTER INSERTION [None]
